FAERS Safety Report 14612834 (Version 1)
Quarter: 2018Q1

REPORT INFORMATION
  Report Type: Spontaneous
  Country: US (occurrence: US)
  Receive Date: 20180308
  Receipt Date: 20180308
  Transmission Date: 20180509
  Serious: Yes (Other)
  Sender: FDA-Public Use
  Company Number: US-ABBVIE-18P-163-2276265-00

PATIENT
  Age: 83 Year
  Sex: Male
  Weight: 63 kg

DRUGS (4)
  1. LUPRON DEPOT [Suspect]
     Active Substance: LEUPROLIDE ACETATE
     Indication: PROSTATE CANCER
     Dosage: YEARLY SHOT
     Route: 065
  2. SUTENT [Suspect]
     Active Substance: SUNITINIB MALATE
     Indication: RENAL CELL CARCINOMA
     Route: 048
     Dates: start: 20170722, end: 2017
  3. MULTIVITAMIN [Concomitant]
     Active Substance: VITAMINS
     Indication: VITAMIN SUPPLEMENTATION
     Route: 048
  4. SUTENT [Suspect]
     Active Substance: SUNITINIB MALATE
     Dosage: 50 MG, ONE CAPSULE BY MOUTH DAILY FOR 14 DAYS
     Route: 048
     Dates: start: 2017, end: 20170825

REACTIONS (17)
  - Prostate cancer [Unknown]
  - Communication disorder [Recovering/Resolving]
  - Gingival pain [Recovering/Resolving]
  - Gingival erythema [Recovering/Resolving]
  - Tongue erythema [Recovering/Resolving]
  - Glossitis [Unknown]
  - Oral mucosal erythema [Recovering/Resolving]
  - Noninfective gingivitis [Unknown]
  - Fatigue [Recovering/Resolving]
  - Swollen tongue [Unknown]
  - Glossodynia [Recovering/Resolving]
  - Mouth swelling [Unknown]
  - Stomatitis [Unknown]
  - Renal cell carcinoma [Unknown]
  - Oral pain [Recovering/Resolving]
  - Gingival swelling [Unknown]
  - Renal cancer metastatic [Unknown]

NARRATIVE: CASE EVENT DATE: 2017
